FAERS Safety Report 17173945 (Version 1)
Quarter: 2019Q4

REPORT INFORMATION
  Report Type: Spontaneous
  Country: US (occurrence: US)
  Receive Date: 20191126
  Receipt Date: 20191126
  Transmission Date: 20200122
  Serious: No
  Sender: FDA-Public Use
  Company Number: None

PATIENT
  Age: 17 Year
  Sex: Female

DRUGS (1)
  1. ENBREL [Suspect]
     Active Substance: ETANERCEPT
     Route: 058
     Dates: start: 20190124

REACTIONS (5)
  - Diarrhoea [None]
  - Abdominal pain upper [None]
  - Constipation [None]
  - White blood cell count increased [None]
  - Pathogen resistance [None]

NARRATIVE: CASE EVENT DATE: 20191112
